FAERS Safety Report 19769547 (Version 1)
Quarter: 2021Q3

REPORT INFORMATION
  Report Type: Spontaneous
  Country: DE (occurrence: DE)
  Receive Date: 20210831
  Receipt Date: 20210831
  Transmission Date: 20211014
  Serious: Yes (Death, Hospitalization)
  Sender: FDA-Public Use
  Company Number: DE-ELI_LILLY_AND_COMPANY-DE202108012310

PATIENT
  Age: 60 Year
  Sex: Female
  Weight: 55 kg

DRUGS (17)
  1. FLUOROURACIL. [Suspect]
     Active Substance: FLUOROURACIL
     Indication: PRODUCT USED FOR UNKNOWN INDICATION
     Dosage: UNK UNK, UNKNOWN
     Route: 042
     Dates: start: 20210222
  2. METAMIZOLE [Concomitant]
     Active Substance: METAMIZOLE
     Indication: PRODUCT USED FOR UNKNOWN INDICATION
     Dosage: 500 MG
  3. CETUXIMAB. [Suspect]
     Active Substance: CETUXIMAB
     Indication: PRODUCT USED FOR UNKNOWN INDICATION
     Dosage: UNK UNK, UNKNOWN
     Route: 042
     Dates: start: 20210222
  4. ONDANSETRON [Concomitant]
     Active Substance: ONDANSETRON
     Indication: PRODUCT USED FOR UNKNOWN INDICATION
     Dosage: 8 MG
  5. MCP [Concomitant]
     Active Substance: METOCLOPRAMIDE HYDROCHLORIDE
     Indication: PRODUCT USED FOR UNKNOWN INDICATION
     Dosage: 8.91 MG
  6. MIRTAZAPINE. [Concomitant]
     Active Substance: MIRTAZAPINE
     Indication: PRODUCT USED FOR UNKNOWN INDICATION
     Dosage: 30 MG, DAILY
  7. MAGNESIUM VERLA [MAGNESIUM] [Concomitant]
     Indication: PRODUCT USED FOR UNKNOWN INDICATION
     Dosage: UNK UNK, DAILY
  8. HYDROMORPHONE [Concomitant]
     Active Substance: HYDROMORPHONE
     Indication: PRODUCT USED FOR UNKNOWN INDICATION
     Dosage: 4 MG
  9. FENTANYL. [Concomitant]
     Active Substance: FENTANYL
     Indication: PRODUCT USED FOR UNKNOWN INDICATION
     Dosage: 200 UG
  10. BISACODYL. [Concomitant]
     Active Substance: BISACODYL
     Indication: PRODUCT USED FOR UNKNOWN INDICATION
     Dosage: 10 MG
  11. PANTOPRAZOLE [Concomitant]
     Active Substance: PANTOPRAZOLE
     Indication: PRODUCT USED FOR UNKNOWN INDICATION
     Dosage: 40 MG, DAILY
  12. TORASEMIDE [Concomitant]
     Active Substance: TORSEMIDE
     Indication: PRODUCT USED FOR UNKNOWN INDICATION
     Dosage: 5 MG, DAILY
  13. MOVICOL [Concomitant]
     Active Substance: POLYETHYLENE GLYCOL 3350\POTASSIUM CHLORIDE\SODIUM BICARBONATE\SODIUM CHLORIDE
     Indication: PRODUCT USED FOR UNKNOWN INDICATION
     Dosage: UNK
  14. PREGABALIN. [Concomitant]
     Active Substance: PREGABALIN
     Indication: PRODUCT USED FOR UNKNOWN INDICATION
     Dosage: 100 MG
  15. KALINOR [CITRIC ACID;POTASSIUM BICARBONATE;PO [Concomitant]
     Indication: PRODUCT USED FOR UNKNOWN INDICATION
     Dosage: 78 MG
  16. CISPLATIN. [Suspect]
     Active Substance: CISPLATIN
     Indication: PRODUCT USED FOR UNKNOWN INDICATION
     Dosage: UNK UNK, UNKNOWN
     Route: 042
     Dates: start: 20210222
  17. FLUOR?VIGANTOLETTEN [CHOLESTEROL;COLECALCIFER [Concomitant]
     Indication: PRODUCT USED FOR UNKNOWN INDICATION
     Dosage: UNK UNK, DAILY

REACTIONS (4)
  - Vomiting [Unknown]
  - Diarrhoea [Unknown]
  - General physical health deterioration [Unknown]
  - Nausea [Unknown]
